FAERS Safety Report 6211937-5 (Version None)
Quarter: 2009Q2

REPORT INFORMATION
  Report Type: 
  Country: None (occurrence: None)
  Receive Date: 20090602
  Receipt Date: 20090520
  Transmission Date: 20091009
  Serious: Yes (Other)
  Sender: FDA-Public Use
  Company Number: IT-B.I. PHARMACEUTICALS,INC./RIDGEFIELD-2009-DE-03891GD

PATIENT
  Weight: 2.73 kg

DRUGS (3)
  1. CLONIDINE [Suspect]
     Route: 064
  2. ROPIVACAINE HYDROCHLORIDE [Suspect]
     Route: 064
  3. SUFENTANIL [Suspect]
     Route: 064

REACTIONS (3)
  - APGAR SCORE LOW [None]
  - FOETAL DISTRESS SYNDROME [None]
  - NEONATAL RESPIRATORY DISTRESS SYNDROME [None]
